FAERS Safety Report 15340033 (Version 1)
Quarter: 2018Q3

REPORT INFORMATION
  Report Type: Report from Study
  Country: CA (occurrence: CA)
  Receive Date: 20180831
  Receipt Date: 20180831
  Transmission Date: 20181010
  Serious: Yes (Hospitalization, Other)
  Sender: FDA-Public Use
  Company Number: CA-JNJFOC-20180538362

PATIENT
  Age: 72 Year
  Sex: Female

DRUGS (4)
  1. STELARA [Suspect]
     Active Substance: USTEKINUMAB
     Indication: CROHN^S DISEASE
     Route: 058
  2. PANTOPRAZOLE [Concomitant]
     Active Substance: PANTOPRAZOLE
     Route: 065
  3. DIAZEPAM. [Concomitant]
     Active Substance: DIAZEPAM
     Route: 065
  4. STELARA [Suspect]
     Active Substance: USTEKINUMAB
     Indication: CROHN^S DISEASE
     Dosage: STRENGTH = 90 MG
     Route: 058
     Dates: start: 20171004

REACTIONS (8)
  - Diverticulitis [Unknown]
  - Dyspepsia [Not Recovered/Not Resolved]
  - General physical health deterioration [Recovering/Resolving]
  - Off label use [Unknown]
  - Crohn^s disease [Not Recovered/Not Resolved]
  - Product use issue [Unknown]
  - Drug level decreased [Unknown]
  - Eye ulcer [Not Recovered/Not Resolved]

NARRATIVE: CASE EVENT DATE: 20180526
